FAERS Safety Report 6646623-0 (Version None)
Quarter: 2010Q1

REPORT INFORMATION
  Report Type: 
  Country: None (occurrence: None)
  Receive Date: 20100317
  Receipt Date: 20100303
  Transmission Date: 20100710
  Serious: Yes (Death)
  Sender: FDA-Public Use
  Company Number: 2010SP000709

PATIENT
  Age: 75 Year
  Sex: Male

DRUGS (10)
  1. BROVANA [Suspect]
     Indication: DYSPNOEA
     Dosage: 14 UG/2ML;BID;INHALATION
     Route: 055
     Dates: start: 20090225
  2. BROVANA [Suspect]
     Indication: LUNG NEOPLASM MALIGNANT
     Dosage: 14 UG/2ML;BID;INHALATION
     Route: 055
     Dates: start: 20090225
  3. LIPITOR [Concomitant]
  4. COZAAR [Concomitant]
  5. NORVASC [Concomitant]
  6. COREG [Concomitant]
  7. LASIX [Concomitant]
  8. EXELON [Concomitant]
  9. ZOLOFT /01011402/ [Concomitant]
  10. PREV MEDS [Concomitant]

REACTIONS (1)
  - DEATH [None]
